FAERS Safety Report 21982178 (Version 1)
Quarter: 2023Q1

REPORT INFORMATION
  Report Type: Spontaneous
  Country: FR (occurrence: FR)
  Receive Date: 20230213
  Receipt Date: 20230213
  Transmission Date: 20230418
  Serious: Yes (Hospitalization, Other)
  Sender: FDA-Public Use
  Company Number: None

PATIENT
  Age: 91 Year
  Sex: Male
  Weight: 100 kg

DRUGS (2)
  1. ELIQUIS [Suspect]
     Active Substance: APIXABAN
     Indication: Thrombosis prophylaxis
     Route: 048
     Dates: start: 20221101, end: 20221114
  2. AMOXICILLIN [Suspect]
     Active Substance: AMOXICILLIN
     Indication: Bacteraemia
     Route: 048
     Dates: start: 20221110, end: 20221114

REACTIONS (1)
  - Thrombocytopenia [Recovering/Resolving]

NARRATIVE: CASE EVENT DATE: 20221114
